FAERS Safety Report 20964233 (Version 4)
Quarter: 2022Q3

REPORT INFORMATION
  Report Type: Spontaneous
  Country: CA (occurrence: CA)
  Receive Date: 20220615
  Receipt Date: 20220916
  Transmission Date: 20221026
  Serious: Yes (Hospitalization, Other)
  Sender: FDA-Public Use
  Company Number: CA-PFIZER INC-202200783033

PATIENT
  Age: 86 Year
  Sex: Male

DRUGS (2)
  1. MEKTOVI [Suspect]
     Active Substance: BINIMETINIB
     Indication: Malignant melanoma
     Dosage: 30 MG, 2X/DAY
     Route: 048
     Dates: start: 20220606, end: 20220608
  2. BRAFTOVI [Concomitant]
     Active Substance: ENCORAFENIB
     Dosage: 225 MG, DAILY, STATING TO RESTART
     Route: 048

REACTIONS (6)
  - Pneumonia [Unknown]
  - Off label use [Unknown]
  - Product use issue [Unknown]
  - Neoplasm progression [Unknown]
  - Dysphagia [Unknown]
  - Malaise [Unknown]

NARRATIVE: CASE EVENT DATE: 20220608
